FAERS Safety Report 8542834-8 (Version None)
Quarter: 2012Q3

REPORT INFORMATION
  Report Type: 
  Country: None (occurrence: None)
  Receive Date: 20120727
  Receipt Date: 20120719
  Transmission Date: 20120928
  Serious: No
  Sender: FDA-Public Use
  Company Number: US-BIOGENIDEC-2012BI026235

PATIENT
  Age: 53 Year
  Sex: Female

DRUGS (1)
  1. AVONEX [Suspect]
     Indication: MULTIPLE SCLEROSIS
     Route: 030
     Dates: start: 20120625

REACTIONS (6)
  - VISUAL IMPAIRMENT [None]
  - RESTLESSNESS [None]
  - MIGRAINE [None]
  - NERVOUSNESS [None]
  - DEPRESSION [None]
  - INFLUENZA LIKE ILLNESS [None]
